FAERS Safety Report 8335012-9 (Version None)
Quarter: 2012Q1

REPORT INFORMATION
  Report Type: 
  Country: None (occurrence: None)
  Receive Date: 20120329
  Receipt Date: 20090407
  Transmission Date: 20120608
  Serious: Yes (Other)
  Sender: FDA-Public Use
  Company Number: PHEH2009US03490

PATIENT
  Age: 89 Year
  Sex: Female

DRUGS (5)
  1. PAXIL [Suspect]
     Dosage: 10 MG
  2. RAZADYNE [Suspect]
  3. WELLBUTRIN [Suspect]
     Dosage: 150 MG
  4. REMERON [Suspect]
     Dosage: 15 MG
  5. EXELON [Suspect]
     Dosage: 4.6 MG

REACTIONS (1)
  - DELUSION [None]
